FAERS Safety Report 25277566 (Version 1)
Quarter: 2025Q2

REPORT INFORMATION
  Report Type: Spontaneous
  Country: US (occurrence: US)
  Receive Date: 20250507
  Receipt Date: 20250507
  Transmission Date: 20250717
  Serious: Yes (Death, Hospitalization)
  Sender: AMGEN
  Company Number: US-AMGEN-USASP2025086866

PATIENT

DRUGS (5)
  1. RITUXIMAB [Suspect]
     Active Substance: RITUXIMAB
     Indication: Haematological malignancy
     Route: 065
  2. PREDNISONE [Suspect]
     Active Substance: PREDNISONE
     Indication: Haematological malignancy
     Route: 065
  3. CYCLOPHOSPHAMIDE [Concomitant]
     Active Substance: CYCLOPHOSPHAMIDE
     Indication: Haematological malignancy
  4. DOXORUBICIN [Concomitant]
     Active Substance: DOXORUBICIN
     Indication: Haematological malignancy
  5. BORTEZOMIB [Concomitant]
     Active Substance: BORTEZOMIB
     Indication: Haematological malignancy

REACTIONS (4)
  - Death [Fatal]
  - Lactic acidosis [Unknown]
  - Acute kidney injury [Unknown]
  - Tumour lysis syndrome [Unknown]
